FAERS Safety Report 24368508 (Version 1)
Quarter: 2024Q3

REPORT INFORMATION
  Report Type: Report from Study
  Country: US (occurrence: US)
  Receive Date: 20240926
  Receipt Date: 20240926
  Transmission Date: 20241017
  Serious: Yes (Hospitalization, Other)
  Sender: ALEXION PHARMACEUTICALS
  Company Number: US-AstraZeneca-CH-00708610A

PATIENT

DRUGS (1)
  1. ULTOMIRIS [Suspect]
     Active Substance: RAVULIZUMAB-CWVZ
     Indication: Product used for unknown indication
     Dosage: UNK
     Route: 065

REACTIONS (7)
  - Blood sodium decreased [Unknown]
  - Peripheral swelling [Unknown]
  - Pneumonia fungal [Unknown]
  - Thrombosis [Unknown]
  - Pulmonary thrombosis [Unknown]
  - Dry mouth [Unknown]
  - Fatigue [Unknown]
